FAERS Safety Report 12057343 (Version 1)
Quarter: 2016Q1

REPORT INFORMATION
  Report Type: Report from Study
  Country: US (occurrence: US)
  Receive Date: 20160209
  Receipt Date: 20160209
  Transmission Date: 20160526
  Serious: No
  Sender: FDA-Public Use
  Company Number: US-ABBVIE-15P-163-1481094-00

PATIENT
  Age: 54 Year
  Sex: Female

DRUGS (1)
  1. HUMIRA [Suspect]
     Active Substance: ADALIMUMAB
     Indication: RHEUMATOID ARTHRITIS
     Route: 065
     Dates: start: 20150924

REACTIONS (6)
  - Oral discomfort [Unknown]
  - Fasciitis [Unknown]
  - Synovitis [Unknown]
  - Bursitis [Unknown]
  - Tongue discolouration [Unknown]
  - Tendon pain [Unknown]

NARRATIVE: CASE EVENT DATE: 20151005
